FAERS Safety Report 6943469-0 (Version None)
Quarter: 2010Q3

REPORT INFORMATION
  Report Type: 
  Country: None (occurrence: None)
  Receive Date: 20100826
  Receipt Date: 20100820
  Transmission Date: 20110219
  Serious: Yes (Death, Hospitalization)
  Sender: FDA-Public Use
  Company Number: US-GILEAD-2010-0030883

PATIENT
  Sex: Male
  Weight: 99.88 kg

DRUGS (17)
  1. LETAIRIS [Suspect]
     Indication: PULMONARY ARTERIAL HYPERTENSION
     Route: 048
     Dates: start: 20090131, end: 20100808
  2. BUPROPION [Concomitant]
  3. ACYCLOVIR SODIUM [Concomitant]
  4. SYNTHROID [Concomitant]
  5. ZOLOFT [Concomitant]
  6. LOVENOX [Concomitant]
  7. REVLIMID [Concomitant]
  8. FOLIC ACID [Concomitant]
  9. ACETAMINOPHEN AND HYDROCODONE BITARTRATE [Concomitant]
  10. PSEUDOEPHEDRINE [Concomitant]
  11. AMBIEN [Concomitant]
  12. ALLOPURINOL [Concomitant]
  13. DEXAMETHASONE [Concomitant]
  14. CARFILZOMIB [Concomitant]
  15. METRONIDAZOLE [Concomitant]
  16. IMODIUM A-D [Concomitant]
  17. LEVAQUIN [Concomitant]

REACTIONS (1)
  - CEREBROVASCULAR ACCIDENT [None]
